FAERS Safety Report 5243964-9 (Version None)
Quarter: 2007Q1

REPORT INFORMATION
  Report Type: 
  Country: None (occurrence: None)
  Receive Date: 20070215
  Receipt Date: 20070202
  Transmission Date: 20070707
  Serious: Yes (Hospitalization)
  Sender: FDA-Public Use
  Company Number: 236022

PATIENT
  Age: 40 Year
  Sex: Male

DRUGS (2)
  1. XOLAIR [Suspect]
     Indication: ASTHMA
     Dosage: 150 MG, Q2W, SUBCUTANEOUS; 300 MG, Q2W, SUBCUTANEOUS
     Route: 058
     Dates: start: 20050901
  2. PREDNISONE [Concomitant]

REACTIONS (7)
  - BACK PAIN [None]
  - CYTOLYTIC HEPATITIS [None]
  - OEDEMA PERIPHERAL [None]
  - PHARYNGOLARYNGEAL PAIN [None]
  - RENAL FAILURE [None]
  - SERUM SICKNESS [None]
  - URINARY TRACT INFECTION STAPHYLOCOCCAL [None]
